FAERS Safety Report 6332126-X (Version None)
Quarter: 2009Q3

REPORT INFORMATION
  Report Type: 
  Country: None (occurrence: None)
  Receive Date: 20090827
  Receipt Date: 20090827
  Transmission Date: 20100115
  Serious: No
  Sender: FDA-Public Use
  Company Number: None

PATIENT

DRUGS (1)
  1. CYCLOSPORINE [Suspect]
     Indication: MYASTHENIA GRAVIS

REACTIONS (8)
  - ANGER [None]
  - BLOOD PRESSURE DIASTOLIC INCREASED [None]
  - FORMICATION [None]
  - MIGRAINE [None]
  - NAUSEA [None]
  - PAIN [None]
  - PALPITATIONS [None]
  - SUICIDAL IDEATION [None]
